FAERS Safety Report 5029579-6 (Version None)
Quarter: 2006Q2

REPORT INFORMATION
  Report Type: 
  Country: None (occurrence: None)
  Receive Date: 20060504
  Receipt Date: 20051206
  Transmission Date: 20061013
  Serious: No
  Sender: FDA-Public Use
  Company Number: 200511637BWH

PATIENT
  Sex: Male

DRUGS (6)
  1. LEVITRA [Suspect]
     Dosage: 10 MG, ONCE, ORAL
     Route: 048
     Dates: start: 20050811
  2. FOSINOPRIL [Concomitant]
  3. DOXAZOSIN [Concomitant]
  4. CLOPIDOGREL [Concomitant]
  5. SIMVASTATIN [Concomitant]
  6. FOSAMAX [Concomitant]

REACTIONS (1)
  - FLUSHING [None]
